FAERS Safety Report 14188350 (Version 12)
Quarter: 2020Q1

REPORT INFORMATION
  Report Type: Spontaneous
  Country: JP (occurrence: JP)
  Receive Date: 20171114
  Receipt Date: 20200217
  Transmission Date: 20200409
  Serious: Yes (Death, Hospitalization, Other)
  Sender: FDA-Public Use
  Company Number: JP-009507513-1710JPN001542J

PATIENT
  Age: 45 Year
  Sex: Male
  Weight: 60 kg

DRUGS (5)
  1. PREDONINE [Suspect]
     Active Substance: PREDNISOLONE
     Indication: PANCREATITIS
     Dosage: 30-100MG
     Route: 048
     Dates: start: 20170920, end: 20171123
  2. ASTOMIN [Concomitant]
     Active Substance: DIMEMORFAN
     Indication: COUGH
     Dosage: 20 MG, TID, APPROPRIATELY ADJUSTED
     Route: 048
     Dates: start: 20170904, end: 20171010
  3. TAKECAB [Concomitant]
     Active Substance: VONOPRAZAN FUMURATE
     Indication: PROPHYLAXIS
     Dosage: 10 MG, QD
     Route: 048
     Dates: start: 20170608, end: 20171010
  4. LOXOPROFEN [Concomitant]
     Active Substance: LOXOPROFEN
     Indication: CANCER PAIN
     Dosage: 60 MG, TID, APPROPRIATELY ADJUSTED
     Route: 048
     Dates: start: 20170608, end: 20171010
  5. KEYTRUDA [Suspect]
     Active Substance: PEMBROLIZUMAB
     Indication: SQUAMOUS CELL CARCINOMA OF LUNG
     Dosage: 200 MILLIGRAM, QD
     Route: 041
     Dates: start: 20170911, end: 20170911

REACTIONS (17)
  - Abdominal pain upper [Recovering/Resolving]
  - Cardiac tamponade [Recovering/Resolving]
  - Oral candidiasis [Not Recovered/Not Resolved]
  - Pulmonary embolism [Not Recovered/Not Resolved]
  - Renal infarct [Not Recovered/Not Resolved]
  - Lung disorder [Recovering/Resolving]
  - Pancreatitis [Not Recovered/Not Resolved]
  - Cholestasis [Not Recovered/Not Resolved]
  - Malignant neoplasm progression [Fatal]
  - C-reactive protein increased [Unknown]
  - Decreased appetite [Recovered/Resolved]
  - Disuse syndrome [Not Recovered/Not Resolved]
  - Acne [Not Recovered/Not Resolved]
  - Atrial fibrillation [Recovered/Resolved]
  - Malaise [Recovered/Resolved]
  - Constipation [Not Recovered/Not Resolved]
  - Pyrexia [Recovered/Resolved]

NARRATIVE: CASE EVENT DATE: 20170912
